FAERS Safety Report 7108812-0 (Version None)
Quarter: 2010Q4

REPORT INFORMATION
  Report Type: 
  Country: None (occurrence: None)
  Receive Date: 20101115
  Receipt Date: 20101115
  Transmission Date: 20110411
  Serious: Yes (Other)
  Sender: FDA-Public Use
  Company Number: None

PATIENT
  Age: 30 Year
  Sex: Female
  Weight: 85.7298 kg

DRUGS (1)
  1. MIRENA [Suspect]
     Indication: CONTRACEPTION
     Dates: start: 20080501, end: 20101112

REACTIONS (7)
  - BREAST ENGORGEMENT [None]
  - CONFUSIONAL STATE [None]
  - DEPRESSION [None]
  - HAIR GROWTH ABNORMAL [None]
  - MOOD SWINGS [None]
  - PSYCHIATRIC SYMPTOM [None]
  - WEIGHT INCREASED [None]
